FAERS Safety Report 12236671 (Version 1)
Quarter: 2016Q2

REPORT INFORMATION
  Report Type: Spontaneous
  Country: US (occurrence: US)
  Receive Date: 20160405
  Receipt Date: 20160405
  Transmission Date: 20160815
  Serious: Yes (Hospitalization)
  Sender: FDA-Public Use
  Company Number: US-JNJFOC-20160325159

PATIENT
  Age: 20 Year
  Sex: Female

DRUGS (2)
  1. ROCEPHIN [Suspect]
     Active Substance: CEFTRIAXONE SODIUM
     Indication: URINARY TRACT INFECTION
     Route: 065
  2. INVOKANA [Suspect]
     Active Substance: CANAGLIFLOZIN
     Indication: TYPE 1 DIABETES MELLITUS
     Dosage: EVERY MORNING
     Route: 048

REACTIONS (3)
  - Diabetic ketoacidosis [Recovered/Resolved]
  - Off label use [Unknown]
  - Product use issue [Unknown]

NARRATIVE: CASE EVENT DATE: 201411
